FAERS Safety Report 18293470 (Version 1)
Quarter: 2020Q3

REPORT INFORMATION
  Report Type: Spontaneous
  Country: US (occurrence: US)
  Receive Date: 20200921
  Receipt Date: 20200921
  Transmission Date: 20201103
  Serious: No
  Sender: FDA-Public Use
  Company Number: US-ACORDA-ACO_165517_2020

PATIENT
  Sex: Male
  Weight: 90.7 kg

DRUGS (2)
  1. INBRIJA [Suspect]
     Active Substance: LEVODOPA
     Indication: PARKINSON^S DISEASE
  2. INBRIJA [Suspect]
     Active Substance: LEVODOPA
     Indication: ON AND OFF PHENOMENON
     Dosage: 2 CAPSULES, AS NEEDED (UP TO 5 TIMES PER DAY)
     Dates: start: 2020

REACTIONS (4)
  - Drug ineffective [Unknown]
  - Device occlusion [Unknown]
  - Cough [Unknown]
  - Device issue [Unknown]
